FAERS Safety Report 12732454 (Version 1)
Quarter: 2016Q3

REPORT INFORMATION
  Report Type: Spontaneous
  Country: US (occurrence: US)
  Receive Date: 20160910
  Receipt Date: 20160910
  Transmission Date: 20161109
  Serious: No
  Sender: FDA-Public Use
  Company Number: None

PATIENT
  Age: 42 Year
  Sex: Male
  Weight: 78.75 kg

DRUGS (3)
  1. DOCTOR^S BEST HIGH ABSORPTION 100% CHELATED MAGNESIUM [Concomitant]
  2. BLUEBONNET VITAMIN D [Concomitant]
  3. LEVOFLOXACIN 500 MG TABLET [Suspect]
     Active Substance: LEVOFLOXACIN
     Indication: EPIDIDYMITIS
     Dosage: 1 TABLET DAILY ORAL
     Route: 048
     Dates: start: 20160825, end: 20160910

REACTIONS (3)
  - Tendon pain [None]
  - Arthralgia [None]
  - Myalgia [None]

NARRATIVE: CASE EVENT DATE: 20160828
